FAERS Safety Report 25494267 (Version 1)
Quarter: 2025Q2

REPORT INFORMATION
  Report Type: Spontaneous
  Country: ES (occurrence: ES)
  Receive Date: 20250630
  Receipt Date: 20250630
  Transmission Date: 20250717
  Serious: Yes (Hospitalization, Other)
  Sender: AUROBINDO
  Company Number: ES-AGEMED-642160340

PATIENT
  Age: 31 Year
  Sex: Male

DRUGS (4)
  1. FLUOXETINE [Suspect]
     Active Substance: FLUOXETINE HYDROCHLORIDE
     Indication: Suicide attempt
     Dosage: 400 MILLIGRAM, ONCE A DAY ( FREQUENCY UNIT: 1 DAY)
     Route: 048
     Dates: start: 20150223, end: 20150223
  2. FLUOXETINE [Suspect]
     Active Substance: FLUOXETINE HYDROCHLORIDE
     Indication: Depression
     Dosage: 20 MILLIGRAM, ONCE A DAY( FREQUENCY UNIT: 1 DAY)
     Route: 048
     Dates: start: 20150223, end: 20150223
  3. GABAPENTIN [Suspect]
     Active Substance: GABAPENTIN
     Indication: Suicide attempt
     Dosage: 4.5 MILLIGRAM, ONCE A DAY( FREQUENCY UNIT: 1 DAY)
     Route: 048
     Dates: start: 20150223, end: 20150223
  4. ACETAMINOPHEN [Suspect]
     Active Substance: ACETAMINOPHEN
     Indication: Suicide attempt
     Dosage: 20 MILLIGRAM, ONCE A DAY( FREQUENCY UNIT: 1 DAY)
     Route: 048
     Dates: start: 20150223, end: 20150223

REACTIONS (2)
  - Hepatitis acute [Recovering/Resolving]
  - Intentional overdose [Recovering/Resolving]

NARRATIVE: CASE EVENT DATE: 20150224
